FAERS Safety Report 6967874-1 (Version None)
Quarter: 2010Q3

REPORT INFORMATION
  Report Type: 
  Country: None (occurrence: None)
  Receive Date: 20100907
  Receipt Date: 20100504
  Transmission Date: 20110219
  Serious: No
  Sender: FDA-Public Use
  Company Number: A0857911A

PATIENT
  Age: 67 Year
  Sex: Female

DRUGS (7)
  1. ROPINIROLE [Suspect]
     Indication: PARKINSON'S DISEASE
     Dosage: 1TAB THREE TIMES PER DAY
     Route: 048
     Dates: start: 20100420, end: 20100421
  2. CARBIDOPA AND LEVODOPA [Concomitant]
  3. SINEMET [Concomitant]
  4. AMANTADINE [Concomitant]
  5. HYZAAR [Concomitant]
  6. SIMVASTATIN [Concomitant]
  7. CELEBREX [Concomitant]

REACTIONS (3)
  - FATIGUE [None]
  - NAUSEA [None]
  - VOMITING [None]
